FAERS Safety Report 9832769 (Version 2)
Quarter: 2014Q1

REPORT INFORMATION
  Report Type: Spontaneous
  Country: US (occurrence: US)
  Receive Date: 20140121
  Receipt Date: 20140221
  Transmission Date: 20141002
  Serious: Yes (Hospitalization)
  Sender: FDA-Public Use
  Company Number: US-GLAXOSMITHKLINE-A1057072A

PATIENT
  Age: 56 Year
  Sex: Female
  Weight: 150.5 kg

DRUGS (9)
  1. WELLBUTRIN SR [Suspect]
     Indication: DEPRESSION
     Dosage: 150MG TWICE PER DAY
     Route: 048
  2. LASIX [Concomitant]
  3. METOPROLOL TARTRATE [Concomitant]
  4. PARAFON FORTE [Concomitant]
  5. ZOLOFT [Concomitant]
  6. GABAPENTIN [Concomitant]
  7. PROTONIX [Concomitant]
  8. MOBIC [Concomitant]
  9. TRAZODONE [Concomitant]

REACTIONS (2)
  - Joint dislocation [Recovering/Resolving]
  - Knee operation [Recovering/Resolving]
